FAERS Safety Report 18676851 (Version 3)
Quarter: 2021Q1

REPORT INFORMATION
  Report Type: Spontaneous
  Country: FR (occurrence: FR)
  Receive Date: 20201229
  Receipt Date: 20210312
  Transmission Date: 20210419
  Serious: Yes (Congenital Anomaly, Other)
  Sender: FDA-Public Use
  Company Number: NVSC2020FR328632

PATIENT
  Sex: Male
  Weight: 3.51 kg

DRUGS (3)
  1. FOLIC ACID. [Concomitant]
     Active Substance: FOLIC ACID
     Indication: FOETAL EXPOSURE DURING PREGNANCY
     Dosage: UNK
     Route: 064
  2. LAMOTRIGINE. [Suspect]
     Active Substance: LAMOTRIGINE
     Indication: FOETAL EXPOSURE DURING PREGNANCY
     Dosage: UNK (LAMICTAL)
     Route: 064
     Dates: start: 20050327, end: 20060102
  3. DEPAKINE CHRONO [Suspect]
     Active Substance: VALPROATE SODIUM
     Indication: FOETAL EXPOSURE DURING PREGNANCY
     Dosage: MATERNAL DOSE: 4 DF, QD
     Route: 064
     Dates: start: 20050327, end: 20060102

REACTIONS (35)
  - Talipes [Unknown]
  - Disturbance in social behaviour [Unknown]
  - Learning disorder [Unknown]
  - Coordination abnormal [Unknown]
  - Foetal exposure during pregnancy [Unknown]
  - Nasal disorder [Unknown]
  - Sluggishness [Unknown]
  - Hypotonia neonatal [Unknown]
  - Hypermobility syndrome [Unknown]
  - Myopia [Unknown]
  - Gait disturbance [Unknown]
  - Dyslexia [Unknown]
  - Ear disorder [Unknown]
  - Oropharyngeal discomfort [Unknown]
  - Speech disorder developmental [Unknown]
  - Strabismus [Unknown]
  - Inguinal hernia [Unknown]
  - Memory impairment [Unknown]
  - Speech sound disorder [Unknown]
  - Dyspraxia [Unknown]
  - Disturbance in attention [Unknown]
  - Hydrocele [Unknown]
  - Behaviour disorder [Unknown]
  - Fine motor skill dysfunction [Unknown]
  - Joint laxity [Unknown]
  - Sitophobia [Unknown]
  - Pharyngeal disorder [Unknown]
  - Rhinitis [Unknown]
  - Autism spectrum disorder [Unknown]
  - Microcephaly [Unknown]
  - Anxiety [Unknown]
  - Heart disease congenital [Unknown]
  - Dysmorphism [Unknown]
  - Psychomotor retardation [Unknown]
  - Loss of personal independence in daily activities [Unknown]

NARRATIVE: CASE EVENT DATE: 20060102
